FAERS Safety Report 25920927 (Version 1)
Quarter: 2025Q4

REPORT INFORMATION
  Report Type: Report from Study
  Country: US (occurrence: US)
  Receive Date: 20251014
  Receipt Date: 20251014
  Transmission Date: 20260118
  Serious: Yes (Other)
  Sender: ALEXION PHARMACEUTICALS
  Company Number: US-AstraZeneca-CH-00969328A

PATIENT
  Sex: Female
  Weight: 97.959 kg

DRUGS (25)
  1. ACALABRUTINIB [Suspect]
     Active Substance: ACALABRUTINIB
     Indication: Chronic lymphocytic leukaemia
     Dosage: 100 MILLIGRAM, BID
     Dates: start: 202008
  2. ACETAMINOPHEN [Concomitant]
     Active Substance: ACETAMINOPHEN
  3. ACYCLOVIR [Concomitant]
     Active Substance: ACYCLOVIR
  4. ADVAIR DISKUS [Concomitant]
     Active Substance: FLUTICASONE PROPIONATE\SALMETEROL XINAFOATE
  5. ALBUTEROL (PT007) [Concomitant]
  6. ALLOPURINOL [Concomitant]
     Active Substance: ALLOPURINOL
  7. CEPHALEXIN [Concomitant]
     Active Substance: CEPHALEXIN
  8. CIPROFLOXACIN [Concomitant]
     Active Substance: CIPROFLOXACIN
  9. MAGNESIUM [Concomitant]
     Active Substance: MAGNESIUM
  10. DUONEB [Concomitant]
     Active Substance: ALBUTEROL SULFATE\IPRATROPIUM BROMIDE
  11. FUROSEMIDE [Concomitant]
     Active Substance: FUROSEMIDE
  12. HYDROCODONE [Concomitant]
     Active Substance: HYDROCODONE
  13. IPRATROPIUM [Concomitant]
     Active Substance: IPRATROPIUM
  14. IRON [Concomitant]
     Active Substance: IRON
  15. LATANOPROST [Concomitant]
     Active Substance: LATANOPROST
  16. METOPROLOL [Concomitant]
     Active Substance: METOPROLOL
  17. MONTELUKAST [Concomitant]
     Active Substance: MONTELUKAST
  18. OMEPRAZOLE [Concomitant]
     Active Substance: OMEPRAZOLE
  19. ONDANSETRON [Concomitant]
     Active Substance: ONDANSETRON
  20. POTASSIUM [Concomitant]
     Active Substance: POTASSIUM
  21. SULFAMETHOXAZOLE [Concomitant]
     Active Substance: SULFAMETHOXAZOLE
  22. TAMSULOSIN [Concomitant]
     Active Substance: TAMSULOSIN
  23. VITAMIN B12 [Concomitant]
     Active Substance: CYANOCOBALAMIN
  24. VITAMIN D [Concomitant]
     Active Substance: VITAMIN D NOS
  25. XARELTO [Concomitant]
     Active Substance: RIVAROXABAN

REACTIONS (2)
  - Product dose omission issue [Recovered/Resolved]
  - Neuropathy peripheral [Unknown]
